FAERS Safety Report 17096761 (Version 3)
Quarter: 2020Q1

REPORT INFORMATION
  Report Type: Spontaneous
  Country: US (occurrence: US)
  Receive Date: 20191202
  Receipt Date: 20200123
  Transmission Date: 20200409
  Serious: No
  Sender: FDA-Public Use
  Company Number: US-LEO PHARMA-326685

PATIENT
  Age: 85 Year
  Sex: Female

DRUGS (1)
  1. PICATO [Suspect]
     Active Substance: INGENOL MEBUTATE
     Indication: SOLAR LENTIGO
     Dosage: APPLY ONE TUBE TO THE FRONT OF EACH LEG ABOVE ANKLE FOR TWO DAYS
     Route: 061
     Dates: start: 20191122

REACTIONS (4)
  - Product physical consistency issue [Unknown]
  - Product administration error [Unknown]
  - Erythema [Recovered/Resolved]
  - Burning sensation [Recovered/Resolved]

NARRATIVE: CASE EVENT DATE: 20191122
